FAERS Safety Report 9198008 (Version 1)
Quarter: 2013Q1

REPORT INFORMATION
  Report Type: Other
  Country: GB (occurrence: GB)
  Receive Date: 20130328
  Receipt Date: 20130328
  Transmission Date: 20140127
  Serious: Yes (Other)
  Sender: FDA-Public Use
  Company Number: GB-WATSON-2013-05109

PATIENT
  Sex: Female

DRUGS (4)
  1. VENLAFAXINE HYDROCHLORIDE (UNKNOWN) [Suspect]
     Indication: DEPRESSION
     Dosage: 150 MG, UNK
     Route: 048
     Dates: start: 2006
  2. VENLAFAXINE HYDROCHLORIDE (UNKNOWN) [Suspect]
     Dosage: 75 MG, UNK
     Route: 048
  3. PROPRANOLOL (WATSON LABORATORIES) [Suspect]
     Indication: MIGRAINE
     Dosage: UNK
     Route: 048
     Dates: start: 201212, end: 201302
  4. CERAZETTE                          /00011001/ [Concomitant]
     Indication: PRODUCT USED FOR UNKNOWN INDICATION
     Route: 065

REACTIONS (4)
  - Disturbance in sexual arousal [Recovered/Resolved]
  - Fatigue [Recovered/Resolved]
  - Anorgasmia [Recovered/Resolved]
  - Disturbance in attention [Recovered/Resolved]
